FAERS Safety Report 13062203 (Version 2)
Quarter: 2016Q4

REPORT INFORMATION
  Report Type: Spontaneous
  Country: JP (occurrence: JP)
  Receive Date: 20161226
  Receipt Date: 20161227
  Transmission Date: 20170207
  Serious: Yes (Hospitalization)
  Sender: FDA-Public Use
  Company Number: JP-ELI_LILLY_AND_COMPANY-JP201607000963

PATIENT
  Age: 66 Year
  Sex: Male
  Weight: 47 kg

DRUGS (3)
  1. CYRAMZA [Suspect]
     Active Substance: RAMUCIRUMAB
     Indication: ADENOCARCINOMA GASTRIC
     Dosage: 360 MG, OTHER
     Route: 042
     Dates: start: 20150703, end: 20150717
  2. PACLITAXEL. [Concomitant]
     Active Substance: PACLITAXEL
     Indication: ADENOCARCINOMA GASTRIC
     Dosage: 110 MG, OTHER
     Route: 042
     Dates: start: 20150703, end: 20150717
  3. CYRAMZA [Suspect]
     Active Substance: RAMUCIRUMAB
     Dosage: 340 MG, OTHER
     Dates: start: 20150907, end: 20160422

REACTIONS (2)
  - Peritonitis [Recovered/Resolved]
  - Large intestine perforation [Recovered/Resolved]

NARRATIVE: CASE EVENT DATE: 20150724
